FAERS Safety Report 23763726 (Version 1)
Quarter: 2024Q2

REPORT INFORMATION
  Report Type: Spontaneous
  Country: ZA (occurrence: None)
  Receive Date: 20240419
  Receipt Date: 20240419
  Transmission Date: 20240716
  Serious: Yes (Death, Other)
  Sender: FDA-Public Use
  Company Number: 2024A092609

PATIENT
  Age: 73 Year
  Sex: Male

DRUGS (4)
  1. BUDESONIDE\FORMOTEROL [Suspect]
     Active Substance: BUDESONIDE\FORMOTEROL
     Indication: Asthma
     Dosage: 120 DOSE, 160 UG UNKNOWN UNKNOWN
     Route: 055
  2. ROSUVASTATIN [Concomitant]
     Active Substance: ROSUVASTATIN
     Indication: Blood cholesterol
     Dosage: 5.0MG UNKNOWN
     Route: 048
  3. CYCLOPHOSPHAMIDE [Concomitant]
     Active Substance: CYCLOPHOSPHAMIDE
     Indication: Chemotherapy
     Dosage: 50.0MG UNKNOWN
     Route: 048
  4. UROMAX [Concomitant]
     Indication: Prostate cancer
     Dosage: 0.4MG UNKNOWN
     Route: 048

REACTIONS (3)
  - Intracranial aneurysm [Fatal]
  - Cerebrovascular accident [Fatal]
  - Loss of consciousness [Fatal]
